FAERS Safety Report 6610888-1 (Version None)
Quarter: 2010Q1

REPORT INFORMATION
  Report Type: 
  Country: None (occurrence: None)
  Receive Date: 20100302
  Receipt Date: 20090915
  Transmission Date: 20100710
  Serious: Yes (Hospitalization, Other)
  Sender: FDA-Public Use
  Company Number: US-ABBOTT-09P-163-0567634-00

PATIENT
  Sex: Female
  Weight: 53.572 kg

DRUGS (6)
  1. DEPAKENE [Suspect]
     Indication: CONVULSION
     Dosage: UNKNOWN
     Route: 048
     Dates: start: 19870701
  2. DEPAKOTE [Suspect]
     Indication: CONVULSION
     Route: 048
     Dates: end: 20061001
  3. DEPAKOTE ER [Suspect]
     Indication: CONVULSION
  4. KEPPRA [Suspect]
     Indication: CONVULSION
     Route: 048
     Dates: start: 20060801, end: 20061001
  5. FOLIC ACID [Concomitant]
     Indication: MEDICAL DIET
     Route: 048
  6. LEVOTHYROXINE SODIUM [Concomitant]
     Indication: HYPOTHYROIDISM
     Route: 048

REACTIONS (2)
  - CONVULSION [None]
  - PSYCHOTIC DISORDER [None]
